FAERS Safety Report 16873609 (Version 1)
Quarter: 2019Q4

REPORT INFORMATION
  Report Type: Spontaneous
  Country: US (occurrence: US)
  Receive Date: 20191001
  Receipt Date: 20191001
  Transmission Date: 20200122
  Serious: No
  Sender: FDA-Public Use
  Company Number: US-TEVA-2019-US-1116395

PATIENT
  Sex: Female

DRUGS (6)
  1. SYNRIBO [Suspect]
     Active Substance: OMACETAXINE MEPESUCCINATE
     Indication: CHRONIC MYELOID LEUKAEMIA
     Dosage: DOSAGE:  2.5MG/0.71ML
  2. BENZONATE [Concomitant]
     Active Substance: BENZONATATE
  3. MORPHINE [Concomitant]
     Active Substance: MORPHINE
  4. XANAX [Concomitant]
     Active Substance: ALPRAZOLAM
  5. FUROSEMIDE. [Concomitant]
     Active Substance: FUROSEMIDE
  6. HYDREA [Concomitant]
     Active Substance: HYDROXYUREA

REACTIONS (1)
  - Drug ineffective [Unknown]
